FAERS Safety Report 9475900 (Version 1)
Quarter: 2013Q3

REPORT INFORMATION
  Report Type: Report from Study
  Country: GB (occurrence: GB)
  Receive Date: 20130826
  Receipt Date: 20130826
  Transmission Date: 20140515
  Serious: Yes (Hospitalization)
  Sender: FDA-Public Use
  Company Number: GB-ROCHE-1265444

PATIENT
  Age: 73 Year
  Sex: Female
  Weight: 95 kg

DRUGS (2)
  1. RITUXIMAB [Suspect]
     Indication: RHEUMATOID ARTHRITIS
     Route: 065
  2. METHOTREXATE [Concomitant]

REACTIONS (1)
  - Atrial fibrillation [Unknown]
